FAERS Safety Report 21572076 (Version 20)
Quarter: 2025Q4

REPORT INFORMATION
  Report Type: Report from Study
  Country: CA (occurrence: CA)
  Receive Date: 20221109
  Receipt Date: 20251223
  Transmission Date: 20260118
  Serious: Yes (Other)
  Sender: JOHNSON AND JOHNSON
  Company Number: CA-JNJFOC-20220915130

PATIENT
  Age: 47 Year
  Sex: Male
  Weight: 67 kg

DRUGS (3)
  1. REMICADE [Suspect]
     Active Substance: INFLIXIMAB
     Indication: Crohn^s disease
     Dosage: LAST INFUSION: 6-AUG-2025
     Route: 041
     Dates: start: 20161019
  2. REMICADE [Suspect]
     Active Substance: INFLIXIMAB
     Dosage: BATCH NUMBER: MHM18013,24B037X5 EXPIRY DATE: 31-JUL-2025,31-JAN-2027
     Route: 041
     Dates: start: 20161019
  3. REMICADE [Suspect]
     Active Substance: INFLIXIMAB
     Dosage: LAST INFUSION: 12-NOV-2025
     Route: 041

REACTIONS (22)
  - Musculoskeletal chest pain [Recovered/Resolved]
  - Crohn^s disease [Recovering/Resolving]
  - Blood iron decreased [Not Recovered/Not Resolved]
  - Serum ferritin decreased [Recovering/Resolving]
  - Haemoglobin decreased [Recovering/Resolving]
  - Immunodeficiency [Unknown]
  - COVID-19 [Not Recovered/Not Resolved]
  - Gastrointestinal inflammation [Unknown]
  - Gastroenteritis viral [Recovering/Resolving]
  - Melanocytic naevus [Unknown]
  - Asthenia [Recovering/Resolving]
  - Limb discomfort [Not Recovered/Not Resolved]
  - Dyspnoea [Recovering/Resolving]
  - Fatigue [Not Recovered/Not Resolved]
  - Dizziness [Unknown]
  - Drug ineffective [Unknown]
  - Muscular weakness [Recovering/Resolving]
  - Angular cheilitis [Unknown]
  - Joint stiffness [Recovering/Resolving]
  - Myalgia [Recovering/Resolving]
  - Rash [Recovered/Resolved]
  - Off label use [Unknown]

NARRATIVE: CASE EVENT DATE: 20220906
